FAERS Safety Report 8023796-9 (Version None)
Quarter: 2012Q1

REPORT INFORMATION
  Report Type: 
  Country: None (occurrence: None)
  Receive Date: 20120103
  Receipt Date: 20120103
  Transmission Date: 20120608
  Serious: Yes (Life-Threatening)
  Sender: FDA-Public Use
  Company Number: None

PATIENT

DRUGS (1)
  1. ZONISAMIDE [Suspect]
     Indication: EPILEPSY
     Dosage: 3 CAP 9AM 2-5 CAP Q PM G TABS
     Dates: start: 20110907, end: 20111230

REACTIONS (1)
  - INFANTILE SPASMS [None]
